FAERS Safety Report 9312434 (Version 1)
Quarter: 2013Q2

REPORT INFORMATION
  Report Type: Spontaneous
  Country: GB (occurrence: GB)
  Receive Date: 20130528
  Receipt Date: 20130528
  Transmission Date: 20140414
  Serious: Yes (Other)
  Sender: FDA-Public Use
  Company Number: GB-BAUSCH-BL-2013-003157

PATIENT
  Age: 61 Year
  Sex: Female
  Weight: 62 kg

DRUGS (11)
  1. DEXAMETHASONE [Suspect]
     Indication: PLASMA CELL MYELOMA
     Route: 065
     Dates: start: 20130318
  2. BORTEZOMIB [Suspect]
     Indication: PLASMA CELL MYELOMA
     Route: 058
     Dates: start: 20130318
  3. ACICLOVIR [Concomitant]
     Dates: start: 20120318
  4. ALLOPURINOL [Concomitant]
     Dates: start: 20130318
  5. CO-TRIMOXAZOLE [Concomitant]
     Dates: start: 20130318
  6. CYCLOPHOSPHAMIDE [Concomitant]
     Dates: start: 20130422
  7. ENOXAPARIN [Concomitant]
     Dates: start: 20130318
  8. FLUCONAZOLE [Concomitant]
     Dates: start: 20130318
  9. LANSOPRAZOLE [Concomitant]
     Dates: start: 20130318
  10. METOCLOPRAMIDE [Concomitant]
     Dates: start: 20130318
  11. ZOPICLONE [Concomitant]
     Dates: start: 20130321

REACTIONS (5)
  - Bone marrow failure [Unknown]
  - Glucose tolerance test abnormal [Unknown]
  - Liver function test abnormal [Unknown]
  - Neutropenia [Unknown]
  - Rash [Unknown]
